FAERS Safety Report 7220039-0 (Version None)
Quarter: 2011Q1

REPORT INFORMATION
  Report Type: 
  Country: None (occurrence: None)
  Receive Date: 20110111
  Receipt Date: 20101222
  Transmission Date: 20110831
  Serious: Yes (Death, Hospitalization)
  Sender: FDA-Public Use
  Company Number: A0805493A

PATIENT
  Age: 51 Year
  Sex: Male

DRUGS (1)
  1. AVANDIA [Suspect]
     Indication: DIABETES MELLITUS
     Dosage: 8MG PER DAY
     Route: 048
     Dates: start: 20070309, end: 20071001

REACTIONS (7)
  - UPPER LIMB FRACTURE [None]
  - MYOCARDIAL INFARCTION [None]
  - UNRESPONSIVE TO STIMULI [None]
  - RESPIRATORY FAILURE [None]
  - ACUTE CORONARY SYNDROME [None]
  - LOWER LIMB FRACTURE [None]
  - RESPIRATORY ACIDOSIS [None]
